FAERS Safety Report 9068424 (Version 1)
Quarter: 2013Q1

REPORT INFORMATION
  Report Type: Spontaneous
  Country: US (occurrence: US)
  Receive Date: 20130128
  Receipt Date: 20130128
  Transmission Date: 20140127
  Serious: Yes (Death)
  Sender: FDA-Public Use
  Company Number: PHHY2013US007050

PATIENT
  Age: 47 Year
  Sex: Male

DRUGS (6)
  1. METOPROLOL [Suspect]
  2. DIAMORPHINE [Suspect]
     Route: 051
  3. CITALOPRAM [Suspect]
     Route: 051
  4. TRAZODONE [Suspect]
     Route: 051
  5. ETHANOL [Suspect]
     Route: 051
  6. QUININE [Suspect]
     Route: 051

REACTIONS (1)
  - Death [Fatal]
